FAERS Safety Report 8911073 (Version 1)
Quarter: 2012Q4

REPORT INFORMATION
  Report Type: 
  Country: GB (occurrence: GB)
  Receive Date: 20121116
  Receipt Date: 20121116
  Transmission Date: 20130627
  Serious: Yes (Life-Threatening, Hospitalization)
  Sender: FDA-Public Use
  Company Number: GB-009507513-1211GBR006198

PATIENT
  Age: 66 Year
  Sex: Male

DRUGS (9)
  1. SITAGLIPTIN PHOSPHATE [Suspect]
     Indication: DIABETES MELLITUS
     Dosage: 100 mg, UNK
     Route: 048
     Dates: start: 20120728, end: 20121028
  2. AMLODIPINE [Concomitant]
  3. ASPIRIN [Concomitant]
  4. BISOPROLOL [Concomitant]
  5. GLICLAZIDE [Concomitant]
  6. INDAPAMIDE [Concomitant]
  7. METFORMIN [Concomitant]
  8. PRAVASTATIN SODIUM [Concomitant]
  9. RAMIPRIL [Concomitant]

REACTIONS (4)
  - Pancreatic carcinoma [Not Recovered/Not Resolved]
  - Diabetes mellitus inadequate control [Unknown]
  - Liver function test abnormal [Unknown]
  - Weight decreased [Unknown]
